FAERS Safety Report 9677770 (Version 1)
Quarter: 2013Q4

REPORT INFORMATION
  Report Type: Spontaneous
  Country: US (occurrence: None)
  Receive Date: 20131107
  Receipt Date: 20131107
  Transmission Date: 20140711
  Serious: Yes (Other)
  Sender: FDA-Public Use
  Company Number: None

PATIENT
  Age: 53 Year
  Sex: Female

DRUGS (1)
  1. ESTROGENS\METHYLTESTOSTERONE [Suspect]
     Indication: OESTROGEN REPLACEMENT THERAPY
     Dosage: 1 PILL
     Route: 048
     Dates: start: 20130925, end: 20131104

REACTIONS (2)
  - Breast pain [None]
  - Breast mass [None]
